FAERS Safety Report 16163475 (Version 1)
Quarter: 2019Q2

REPORT INFORMATION
  Report Type: Spontaneous
  Country: ES (occurrence: ES)
  Receive Date: 20190405
  Receipt Date: 20190405
  Transmission Date: 20190711
  Serious: Yes (Other)
  Sender: FDA-Public Use
  Company Number: ES-UCBSA-2019014491

PATIENT
  Age: 47 Year
  Sex: Female

DRUGS (1)
  1. CIMZIA [Suspect]
     Active Substance: CERTOLIZUMAB PEGOL
     Indication: PRODUCT USED FOR UNKNOWN INDICATION
     Dosage: 1 JERINGA DE 200MG CADA 2 SEMANAS
     Route: 058
     Dates: start: 20110107, end: 20190108

REACTIONS (1)
  - Vulval ulceration [Recovered/Resolved]

NARRATIVE: CASE EVENT DATE: 20170101
